FAERS Safety Report 7259724-3 (Version None)
Quarter: 2011Q1

REPORT INFORMATION
  Report Type: 
  Country: None (occurrence: None)
  Receive Date: 20110130
  Receipt Date: 20100922
  Transmission Date: 20110831
  Serious: No
  Sender: FDA-Public Use
  Company Number: US-ABBOTT-10P-163-0658247-00

PATIENT
  Sex: Male

DRUGS (5)
  1. HUMIRA [Suspect]
     Indication: CROHN'S DISEASE
     Dosage: 80 MG LOADING DOSE
     Dates: start: 20100501
  2. PREDNISONE [Concomitant]
     Indication: CROHN'S DISEASE
     Dosage: WEANING OFF
  3. HUMIRA [Suspect]
  4. IMURAN [Concomitant]
     Indication: CROHN'S DISEASE
     Dosage: 1 PILL
  5. PROTONIX [Concomitant]
     Indication: DYSPEPSIA

REACTIONS (1)
  - INJECTION SITE PAIN [None]
